FAERS Safety Report 23376869 (Version 2)
Quarter: 2025Q1

REPORT INFORMATION
  Report Type: Report from Study
  Country: CA (occurrence: CA)
  Receive Date: 20240108
  Receipt Date: 20250205
  Transmission Date: 20250408
  Serious: Yes (Other)
  Sender: SANDOZ
  Company Number: CA-002147023-NVSC2022CA134557

PATIENT
  Sex: Female

DRUGS (1)
  1. HYRIMOZ [Suspect]
     Active Substance: ADALIMUMAB-ADAZ
     Indication: Crohn^s disease
     Dosage: 40 MG, Q2W (PRE-FILLED SYRINGE)
     Route: 058
     Dates: start: 20220502

REACTIONS (12)
  - Hypokalaemia [Unknown]
  - Illness [Unknown]
  - Arthralgia [Unknown]
  - Fibromyalgia [Unknown]
  - General physical health deterioration [Unknown]
  - Abdominal distension [Unknown]
  - Aphthous ulcer [Unknown]
  - Diarrhoea [Unknown]
  - Headache [Unknown]
  - Abdominal pain [Unknown]
  - Therapeutic response decreased [Unknown]
  - Wrong technique in device usage process [Unknown]

NARRATIVE: CASE EVENT DATE: 20250101
